FAERS Safety Report 4871270-0 (Version None)
Quarter: 2005Q4

REPORT INFORMATION
  Report Type: 
  Country: None (occurrence: None)
  Receive Date: 20051229
  Receipt Date: 20051221
  Transmission Date: 20060501
  Serious: Yes (Hospitalization, Other)
  Sender: FDA-Public Use
  Company Number: 163-20785-05120079

PATIENT
  Age: 81 Year
  Sex: Male

DRUGS (1)
  1. THALOMID [Suspect]
     Indication: AMYLOIDOSIS
     Dosage: 50 MG, DAILY, ORAL
     Route: 048
     Dates: start: 20050901, end: 20051201

REACTIONS (2)
  - CHEST PAIN [None]
  - PNEUMONIA ASPIRATION [None]
